FAERS Safety Report 5108915-6 (Version None)
Quarter: 2006Q3

REPORT INFORMATION
  Report Type: 
  Country: None (occurrence: None)
  Receive Date: 20060918
  Receipt Date: 20060829
  Transmission Date: 20061208
  Serious: Yes (Hospitalization)
  Sender: FDA-Public Use
  Company Number: US200608006488

PATIENT
  Age: 85 Year
  Sex: Male

DRUGS (2)
  1. FORTEO [Suspect]
     Indication: OSTEOPOROSIS
     Dates: start: 20040701, end: 20051001
  2. FORTEO [Concomitant]

REACTIONS (3)
  - BONE DENSITY DECREASED [None]
  - CARDIAC DISORDER [None]
  - PNEUMONIA [None]
